FAERS Safety Report 19214894 (Version 1)
Quarter: 2021Q2

REPORT INFORMATION
  Report Type: Spontaneous
  Country: FR (occurrence: FR)
  Receive Date: 20210505
  Receipt Date: 20210505
  Transmission Date: 20210717
  Serious: Yes (Other)
  Sender: FDA-Public Use
  Company Number: FR-SUN PHARMACEUTICAL INDUSTRIES LTD-2021RR-294105

PATIENT
  Age: 40 Year
  Sex: Female

DRUGS (2)
  1. TRAMADOL HYDROCHLORIDE. [Suspect]
     Active Substance: TRAMADOL HYDROCHLORIDE
     Indication: BLADDER PAIN
     Dosage: 12 DOSAGE FORM, 1/DAY
     Route: 065
  2. TRAMADOL. [Suspect]
     Active Substance: TRAMADOL
     Indication: BLADDER PAIN
     Dosage: UNK ()
     Route: 065

REACTIONS (6)
  - Intentional product misuse [Unknown]
  - Maternal exposure during pregnancy [Recovered/Resolved]
  - Intentional overdose [Unknown]
  - Drug dependence [Recovering/Resolving]
  - Stillbirth [Unknown]
  - Hyperaesthesia [Unknown]
